FAERS Safety Report 5393488-3 (Version None)
Quarter: 2007Q3

REPORT INFORMATION
  Report Type: 
  Country: None (occurrence: None)
  Receive Date: 20070723
  Receipt Date: 20060621
  Transmission Date: 20080115
  Serious: No
  Sender: FDA-Public Use
  Company Number: A0609873A

PATIENT
  Age: 63 Year
  Sex: Female

DRUGS (6)
  1. AVANDIA [Suspect]
     Dosage: 1TAB PER DAY
     Route: 048
     Dates: start: 20050801
  2. GLUCOPHAGE [Concomitant]
  3. GLUCOTROL [Concomitant]
  4. UNISEPT [Concomitant]
  5. NORVASC [Concomitant]
  6. WATER PILL [Concomitant]

REACTIONS (2)
  - INCREASED APPETITE [None]
  - WEIGHT INCREASED [None]
